FAERS Safety Report 9432370 (Version 1)
Quarter: 2013Q3

REPORT INFORMATION
  Report Type: Spontaneous
  Country: US (occurrence: None)
  Receive Date: 20130730
  Receipt Date: 20130730
  Transmission Date: 20140515
  Serious: No
  Sender: FDA-Public Use
  Company Number: None

PATIENT
  Sex: Female
  Weight: 58.97 kg

DRUGS (1)
  1. MYRBETRIG 25MG ASTELLAS [Suspect]
     Indication: URINARY INCONTINENCE
     Dates: start: 20130620, end: 20130704

REACTIONS (3)
  - Drug ineffective [None]
  - Urinary incontinence [None]
  - Condition aggravated [None]
